FAERS Safety Report 11093441 (Version 1)
Quarter: 2015Q2

REPORT INFORMATION
  Report Type: Spontaneous
  Country: US (occurrence: None)
  Receive Date: 20150428
  Receipt Date: 20150428
  Transmission Date: 20150821
  Serious: Yes (Other)
  Sender: FDA-Public Use
  Company Number: PHEH2014US024665

PATIENT
  Age: 48 Year
  Sex: Female
  Weight: 76.2 kg

DRUGS (10)
  1. AMPYRA [Concomitant]
     Active Substance: DALFAMPRIDINE
  2. CITALOPRAM (CITALOPRAM) [Concomitant]
     Active Substance: CITALOPRAM HYDROBROMIDE
  3. PROVIGIL/MODAFINIL (MODAFINIL) [Concomitant]
  4. BACLOFEN (BACLOFEN) [Concomitant]
     Active Substance: BACLOFEN
  5. LANSOPRAZOLE (LANSOPRAZOLE) [Concomitant]
     Active Substance: LANSOPRAZOLE
  6. ASCALOL (BENZYL BENZOATE) [Concomitant]
  7. TIZANIDINE (TIZANIDINE) [Concomitant]
     Active Substance: TIZANIDINE
  8. MULTI VITAMIN (ASCORBIC ACID, COLECALCIFEROL, NICOTINAMIDE, PANTHENOL, PYRIDOXINE HYDROCHLORIDE, RETINOL PALMITATE, RIBOFLAVIN, THIAMINE HYDROCHLORIDE, TOCOPHERYL ACETATE) [Concomitant]
  9. GILENYA [Suspect]
     Active Substance: FINGOLIMOD HYDROCHLORIDE
     Indication: PRODUCT USED FOR UNKNOWN INDICATION
     Route: 048
     Dates: start: 201207
  10. VITAMIN D (ERGOCALCIFEROL [Concomitant]

REACTIONS (4)
  - Stomatitis [None]
  - Lymphopenia [None]
  - Neutrophil count increased [None]
  - Monocyte count increased [None]

NARRATIVE: CASE EVENT DATE: 20140409
